FAERS Safety Report 10777023 (Version 1)
Quarter: 2015Q1

REPORT INFORMATION
  Report Type: Spontaneous
  Country: AR (occurrence: AR)
  Receive Date: 20150209
  Receipt Date: 20150209
  Transmission Date: 20150721
  Serious: Yes (Death, Hospitalization)
  Sender: FDA-Public Use
  Company Number: PHHY2015AR013883

PATIENT
  Age: 58 Year
  Sex: Male

DRUGS (1)
  1. GILENYA [Suspect]
     Active Substance: FINGOLIMOD HYDROCHLORIDE
     Indication: MULTIPLE SCLEROSIS
     Dosage: 0.5 MG, QD (1 DF PER DAY)
     Route: 048
     Dates: start: 201412

REACTIONS (5)
  - Sepsis [Fatal]
  - Cardiogenic shock [Fatal]
  - Fluid retention [Fatal]
  - Urinary tract infection [Fatal]
  - Arrhythmia [Fatal]

NARRATIVE: CASE EVENT DATE: 201412
